FAERS Safety Report 7079257-7 (Version None)
Quarter: 2010Q4

REPORT INFORMATION
  Report Type: 
  Country: None (occurrence: None)
  Receive Date: 20101102
  Receipt Date: 20101025
  Transmission Date: 20110411
  Serious: Yes (Other)
  Sender: FDA-Public Use
  Company Number: US-SANOFI-AVENTIS-2010SA060664

PATIENT
  Age: 86 Year
  Sex: Female
  Weight: 65.78 kg

DRUGS (10)
  1. LANTUS [Suspect]
     Dosage: DOSE:54 UNIT(S)
     Route: 058
  2. LANTUS [Suspect]
     Dosage: DOSE:54 UNIT(S)
     Route: 058
  3. OPTICLICK [Suspect]
     Dates: start: 19950101
  4. OPTICLICK [Suspect]
     Dates: start: 19950101
  5. DETROL [Concomitant]
     Dosage: 1 DOSE
     Dates: start: 19750101
  6. PREVACID [Concomitant]
     Dosage: 1 PILL
     Dates: start: 19750101
  7. ALTACE [Concomitant]
     Dosage: 1 PILL
     Dates: start: 19750101
  8. CARDIZEM CD [Concomitant]
     Dosage: 1 PILL
     Dates: start: 19750101
  9. FLONASE [Concomitant]
     Dosage: 1 SPRAY
     Dates: start: 19750101
  10. REPAGLINIDE [Concomitant]
     Dosage: 6 PILLS DAILY

REACTIONS (1)
  - CARPAL TUNNEL SYNDROME [None]
